FAERS Safety Report 12042109 (Version 1)
Quarter: 2016Q1

REPORT INFORMATION
  Report Type: Report from Study
  Country: US (occurrence: US)
  Receive Date: 20160208
  Receipt Date: 20160208
  Transmission Date: 20160526
  Serious: No
  Sender: FDA-Public Use
  Company Number: US-ABBVIE-15P-163-1399919-00

PATIENT
  Sex: Female

DRUGS (1)
  1. HUMIRA [Suspect]
     Active Substance: ADALIMUMAB
     Indication: PSORIATIC ARTHROPATHY
     Route: 065
     Dates: start: 20150330, end: 20150525

REACTIONS (6)
  - Nausea [Recovering/Resolving]
  - Arthralgia [Unknown]
  - Abasia [Unknown]
  - Diarrhoea [Recovering/Resolving]
  - Depression [Unknown]
  - Pain in extremity [Unknown]
